FAERS Safety Report 18113062 (Version 1)
Quarter: 2020Q3

REPORT INFORMATION
  Report Type: Spontaneous
  Country: CN (occurrence: CN)
  Receive Date: 20200805
  Receipt Date: 20200805
  Transmission Date: 20201103
  Serious: Yes (Other)
  Sender: FDA-Public Use
  Company Number: CN-ROCHE-2652412

PATIENT
  Age: 55 Year
  Sex: Male

DRUGS (17)
  1. IRINOTECAN [Concomitant]
     Active Substance: IRINOTECAN
     Indication: RECTAL CANCER
     Route: 041
     Dates: start: 20190427
  2. TEGAFUR [Concomitant]
     Active Substance: TEGAFUR
     Indication: RECTAL CANCER
     Dosage: TEGAFUR, GIMERACIL AND OTERACIL POTASSIUM CAPSULES
     Route: 048
     Dates: start: 20180928
  3. AVASTIN [Suspect]
     Active Substance: BEVACIZUMAB
     Route: 042
     Dates: start: 20180106, end: 20180521
  4. XELODA [Suspect]
     Active Substance: CAPECITABINE
     Indication: RECTAL CANCER
     Route: 048
     Dates: start: 20161125
  5. XELODA [Suspect]
     Active Substance: CAPECITABINE
     Route: 048
     Dates: start: 20170603
  6. OXALIPLATIN. [Concomitant]
     Active Substance: OXALIPLATIN
     Indication: RECTAL CANCER
     Route: 041
     Dates: start: 20161125, end: 20170510
  7. IRINOTECAN [Concomitant]
     Active Substance: IRINOTECAN
     Dates: start: 20190628
  8. TEGAFUR [Concomitant]
     Active Substance: TEGAFUR
     Dates: start: 20190427
  9. AVASTIN [Suspect]
     Active Substance: BEVACIZUMAB
     Indication: RECTAL CANCER
     Route: 042
     Dates: start: 20170603
  10. XELODA [Suspect]
     Active Substance: CAPECITABINE
     Route: 048
     Dates: start: 20180106
  11. TEGAFUR [Concomitant]
     Active Substance: TEGAFUR
     Route: 048
  12. AVASTIN [Suspect]
     Active Substance: BEVACIZUMAB
     Route: 042
     Dates: start: 20180705
  13. AVASTIN [Suspect]
     Active Substance: BEVACIZUMAB
     Route: 042
     Dates: start: 20180928
  14. AVASTIN [Suspect]
     Active Substance: BEVACIZUMAB
     Route: 042
     Dates: start: 20190427
  15. RALTITREXED [Concomitant]
     Active Substance: RALTITREXED
     Indication: RECTAL CANCER
     Route: 041
     Dates: start: 20180705
  16. NEDAPLATIN [Concomitant]
     Active Substance: NEDAPLATIN
     Indication: RECTAL CANCER
     Route: 041
     Dates: start: 20170603
  17. CISPLATIN. [Concomitant]
     Active Substance: CISPLATIN
     Indication: RECTAL CANCER
     Dates: start: 20180106, end: 20180521

REACTIONS (7)
  - Diarrhoea [Unknown]
  - Granulocyte count decreased [Unknown]
  - Peripheral artery thrombosis [Unknown]
  - Neurotoxicity [Unknown]
  - Platelet count decreased [Unknown]
  - Drug-induced liver injury [Unknown]
  - Blood pressure increased [Unknown]
